FAERS Safety Report 21158925 (Version 3)
Quarter: 2022Q3

REPORT INFORMATION
  Report Type: Spontaneous
  Country: US (occurrence: None)
  Receive Date: 20220802
  Receipt Date: 20220928
  Transmission Date: 20221027
  Serious: Yes (Death)
  Sender: FDA-Public Use
  Company Number: US-ROCHE-3151729

PATIENT
  Age: 77 Year
  Sex: Female

DRUGS (1)
  1. XOLAIR [Suspect]
     Active Substance: OMALIZUMAB
     Indication: Product used for unknown indication
     Dosage: STRENGTH: 150MG?FORM OF ADMIN: VIAL
     Route: 058
     Dates: start: 201711, end: 202207

REACTIONS (1)
  - Death [Fatal]

NARRATIVE: CASE EVENT DATE: 20220711
